FAERS Safety Report 12947459 (Version 3)
Quarter: 2017Q1

REPORT INFORMATION
  Report Type: Spontaneous
  Country: JP (occurrence: JP)
  Receive Date: 20161116
  Receipt Date: 20170103
  Transmission Date: 20170428
  Serious: Yes (Other)
  Sender: FDA-Public Use
  Company Number: JP-CELGENEUS-JPN-2016102471

PATIENT
  Age: 67 Year
  Sex: Female

DRUGS (5)
  1. POMALYST [Suspect]
     Active Substance: POMALIDOMIDE
     Indication: PLASMA CELL MYELOMA
     Dosage: 108 MG
     Route: 048
     Dates: start: 20160708, end: 20160804
  2. POMALYST [Suspect]
     Active Substance: POMALIDOMIDE
     Dosage: UNKNOWN
     Route: 048
     Dates: start: 20161028
  3. LENADEX [Suspect]
     Active Substance: DEXAMETHASONE ACETATE
     Indication: PLASMA CELL MYELOMA
     Dosage: UNKNOWN
     Route: 048
     Dates: start: 20160708
  4. NEO-MINOPHAGEN C [Concomitant]
     Active Substance: AMMONIUM GLYCYRRHIZATE
     Indication: HEPATITIS C
     Dosage: UNKNOWN
     Route: 041
  5. POMALYST [Suspect]
     Active Substance: POMALIDOMIDE
     Dosage: 220 MG
     Route: 048
     Dates: start: 20160812, end: 20161006

REACTIONS (2)
  - Blood bilirubin increased [Recovered/Resolved]
  - Hepatitis C [Recovered/Resolved]

NARRATIVE: CASE EVENT DATE: 20160805
